FAERS Safety Report 13353366 (Version 3)
Quarter: 2017Q2

REPORT INFORMATION
  Report Type: Report from Study
  Country: US (occurrence: US)
  Receive Date: 20170321
  Receipt Date: 20170529
  Transmission Date: 20170830
  Serious: Yes (Hospitalization)
  Sender: FDA-Public Use
  Company Number: US-ROCHE-1903232

PATIENT
  Age: 81 Year
  Sex: Female
  Weight: 64 kg

DRUGS (15)
  1. LASIX [Concomitant]
     Active Substance: FUROSEMIDE
     Indication: OEDEMA PERIPHERAL
     Route: 065
     Dates: start: 20170313
  2. ACYCLOVIR. [Concomitant]
     Active Substance: ACYCLOVIR
     Indication: PROPHYLAXIS
     Route: 065
     Dates: start: 20170126
  3. CIPROFLOXACIN. [Concomitant]
     Active Substance: CIPROFLOXACIN
     Indication: PROPHYLAXIS
     Route: 065
     Dates: start: 20170206
  4. VORICONAZOLE. [Concomitant]
     Active Substance: VORICONAZOLE
     Indication: PROPHYLAXIS
     Route: 065
     Dates: start: 20170205
  5. OXYMETAZOLINE [Concomitant]
     Active Substance: OXYMETAZOLINE
     Indication: EPISTAXIS
     Route: 065
     Dates: start: 20170312
  6. VALSARTAN. [Concomitant]
     Active Substance: VALSARTAN
     Indication: HYPERTENSION
     Route: 065
     Dates: start: 2016
  7. ERGOCALCIFEROL. [Concomitant]
     Active Substance: ERGOCALCIFEROL
     Route: 065
     Dates: start: 2014
  8. GUADECITABINE [Suspect]
     Active Substance: GUADECITABINE
     Indication: ACUTE MYELOID LEUKAEMIA
     Dosage: MOST RECENT DOSE PRIOR TO EVENT: 14/FEB/2017 AT 13:25?60 MG/M2 SC ON DAYS 1-5 OF EVERY 28-DAY CYCLE
     Route: 058
     Dates: start: 20170210
  9. LEVOTHYROXIN [Concomitant]
     Active Substance: LEVOTHYROXINE
     Indication: HYPOTHYROIDISM
     Route: 065
     Dates: start: 2014
  10. PLATELETS [Concomitant]
     Active Substance: HUMAN PLATELET, ALLOGENIC
     Route: 065
     Dates: start: 20170310
  11. ATEZOLIZUMAB [Suspect]
     Active Substance: ATEZOLIZUMAB
     Indication: ACUTE MYELOID LEUKAEMIA
     Dosage: FIXED DOSE PER PROTOCOL. MOST RECENT DOSE GIVEN ON 02/MAR/2017 AT 16:26?DAYS 8 AND 22 OF EACH 28-DAY
     Route: 042
     Dates: start: 20170216
  12. AMLODIPINE [Concomitant]
     Active Substance: AMLODIPINE BESYLATE
     Indication: HYPERTENSION
     Route: 065
     Dates: start: 201605
  13. ONDANSETRON [Concomitant]
     Active Substance: ONDANSETRON
     Indication: NAUSEA
     Route: 065
     Dates: start: 201605
  14. ALLOPURINOL. [Concomitant]
     Active Substance: ALLOPURINOL
     Indication: PROPHYLAXIS
     Route: 065
     Dates: start: 20170126
  15. HYDROXYUREA. [Concomitant]
     Active Substance: HYDROXYUREA
     Indication: WHITE BLOOD CELL COUNT INCREASED
     Route: 065
     Dates: start: 20170126

REACTIONS (1)
  - Pneumonia [Recovered/Resolved]

NARRATIVE: CASE EVENT DATE: 20170303
